FAERS Safety Report 12196201 (Version 1)
Quarter: 2016Q1

REPORT INFORMATION
  Report Type: Spontaneous
  Country: US (occurrence: US)
  Receive Date: 20160321
  Receipt Date: 20160321
  Transmission Date: 20160526
  Serious: Yes (Other)
  Sender: FDA-Public Use
  Company Number: US-JNJFOC-20160315984

PATIENT
  Age: 38 Year
  Sex: Male

DRUGS (1)
  1. RISPERDAL [Suspect]
     Active Substance: RISPERIDONE
     Indication: PRODUCT USED FOR UNKNOWN INDICATION
     Route: 065
     Dates: start: 2010

REACTIONS (9)
  - Facial bones fracture [Unknown]
  - Adverse event [Unknown]
  - Pituitary tumour benign [Unknown]
  - Fall [Unknown]
  - Mania [Unknown]
  - Temperature regulation disorder [Unknown]
  - Seizure [Unknown]
  - Blood pressure decreased [Unknown]
  - Respiratory rate decreased [Unknown]
